FAERS Safety Report 6766569-7 (Version None)
Quarter: 2010Q2

REPORT INFORMATION
  Report Type: 
  Country: None (occurrence: None)
  Receive Date: 20100611
  Receipt Date: 20100604
  Transmission Date: 20101027
  Serious: Yes (Hospitalization)
  Sender: FDA-Public Use
  Company Number: US-ROCHE-703928

PATIENT
  Sex: Male
  Weight: 68 kg

DRUGS (3)
  1. CAPECITABINE [Suspect]
     Indication: GASTRIC CANCER
     Dosage: FREQUENCY: DAY 1- DAY 14 TWICE DAILY
     Route: 048
     Dates: start: 20100224
  2. ELOXATIN [Suspect]
     Indication: GASTRIC CANCER
     Dosage: FREQUENCY: ON  DAY 1 OF CYCLE
     Route: 042
     Dates: start: 20100224
  3. CETUXIMAB [Suspect]
     Indication: GASTRIC CANCER
     Dosage: FREQUENCY: DAY 1, 8 AND 15
     Route: 042
     Dates: start: 20100224

REACTIONS (2)
  - BLOOD BILIRUBIN INCREASED [None]
  - MALIGNANT NEOPLASM PROGRESSION [None]
